FAERS Safety Report 9928342 (Version 3)
Quarter: 2014Q3

REPORT INFORMATION
  Report Type: Spontaneous
  Country: US (occurrence: None)
  Receive Date: 20140224
  Receipt Date: 20140702
  Transmission Date: 20150326
  Serious: Yes (Other)
  Sender: FDA-Public Use
  Company Number: 201402031

PATIENT
  Age: 50 Year
  Sex: Male
  Weight: 75.3 kg

DRUGS (3)
  1. TESTOPEL [Suspect]
     Active Substance: TESTOSTERONE
     Indication: BLOOD TESTOSTERONE DECREASED
     Dosage: 12 PELLETS, SUBCUTANEOUS
     Route: 058
     Dates: start: 20131231, end: 20131231
  2. AMBIEN [Concomitant]
     Active Substance: ZOLPIDEM TARTRATE
  3. ZOCOR [Concomitant]
     Active Substance: SIMVASTATIN

REACTIONS (4)
  - Implant site infection [None]
  - Implant site pain [None]
  - Device extrusion [None]
  - Incorrect dose administered [None]

NARRATIVE: CASE EVENT DATE: 20140130
